FAERS Safety Report 9988704 (Version 2)
Quarter: 2014Q1

REPORT INFORMATION
  Report Type: Spontaneous
  Country: IT (occurrence: None)
  Receive Date: 20131015
  Receipt Date: 20140116
  Transmission Date: 20141002
  Serious: Yes (Other)
  Sender: FDA-Public Use
  Company Number: AUR-APL-2013-07682

PATIENT
  Age: 62 Year
  Sex: Female
  Weight: 50 kg

DRUGS (1)
  1. LEVOFLOXACIN [Suspect]
     Indication: BRONCHITIS
     Dosage: (500 MG, 1 D), ORAL
     Route: 048
     Dates: start: 20130814, end: 20130819

REACTIONS (3)
  - Tendon rupture [None]
  - Musculoskeletal discomfort [None]
  - Tendon pain [None]
